FAERS Safety Report 14665265 (Version 5)
Quarter: 2019Q1

REPORT INFORMATION
  Report Type: Spontaneous
  Country: US (occurrence: US)
  Receive Date: 20180321
  Receipt Date: 20190130
  Transmission Date: 20190417
  Serious: Yes (Other)
  Sender: FDA-Public Use
  Company Number: US-ASTRAZENECA-2018SE33514

PATIENT
  Age: 66 Year
  Sex: Male
  Weight: 102.5 kg

DRUGS (117)
  1. PREVACID [Suspect]
     Active Substance: LANSOPRAZOLE
     Indication: GASTROOESOPHAGEAL REFLUX DISEASE
     Route: 065
     Dates: start: 1999, end: 2015
  2. VITAMIN E [Concomitant]
     Active Substance: .ALPHA.-TOCOPHEROL
     Indication: VITAMIN E DEFICIENCY
     Route: 065
     Dates: start: 2003
  3. LANTUS [Concomitant]
     Active Substance: INSULIN GLARGINE
     Indication: DIABETES MELLITUS
     Route: 065
     Dates: start: 2015
  4. VEETIDS [Concomitant]
     Active Substance: PENICILLIN V POTASSIUM
     Dates: start: 20001212
  5. NITROQUICK [Concomitant]
     Active Substance: NITROGLYCERIN
     Dates: start: 20010404
  6. POTASSIUM CHLORIDE. [Concomitant]
     Active Substance: POTASSIUM CHLORIDE
  7. CARDURA [Concomitant]
     Active Substance: DOXAZOSIN MESYLATE
     Dosage: S
     Route: 048
     Dates: start: 19990208
  8. RALAFEN [Concomitant]
     Dates: start: 19990801
  9. ATROVENT [Concomitant]
     Active Substance: IPRATROPIUM BROMIDE
  10. ACTOS [Concomitant]
     Active Substance: PIOGLITAZONE HYDROCHLORIDE
  11. TRIMOX [Concomitant]
     Active Substance: AMOXICILLIN
  12. FLOVENT [Concomitant]
     Active Substance: FLUTICASONE PROPIONATE
  13. ENALAPRIL [Concomitant]
     Active Substance: ENALAPRIL
  14. INDOMETHACIN. [Concomitant]
     Active Substance: INDOMETHACIN
  15. FERROUS SULFATE. [Concomitant]
     Active Substance: FERROUS SULFATE
  16. ADVAIR DISKU [Concomitant]
  17. COLCRYS [Concomitant]
     Active Substance: COLCHICINE
  18. HUMULIN NOS [Concomitant]
     Active Substance: INSULIN HUMAN
  19. XANAX [Concomitant]
     Active Substance: ALPRAZOLAM
     Route: 048
  20. ATORVASTATIN [Concomitant]
     Active Substance: ATORVASTATIN
     Indication: BLOOD CHOLESTEROL INCREASED
     Route: 065
     Dates: start: 2010
  21. LEVAQUIN [Concomitant]
     Active Substance: LEVOFLOXACIN
     Dates: start: 20031125
  22. BIAXIN [Concomitant]
     Active Substance: CLARITHROMYCIN
     Dates: start: 19990701
  23. HYDROXYZINE HYDROCHLORIDE. [Concomitant]
     Active Substance: HYDROXYZINE HYDROCHLORIDE
  24. AVANDIA [Concomitant]
     Active Substance: ROSIGLITAZONE MALEATE
  25. CLARITHROMYCIN. [Concomitant]
     Active Substance: CLARITHROMYCIN
  26. SILVER SULFA [Concomitant]
  27. NITROGLYCER [Concomitant]
  28. AZELASTINE. [Concomitant]
     Active Substance: AZELASTINE HYDROCHLORIDE
  29. BENZONATATE. [Concomitant]
     Active Substance: BENZONATATE
  30. LANTUS [Concomitant]
     Active Substance: INSULIN GLARGINE
  31. GLUCOTROL [Concomitant]
     Active Substance: GLIPIZIDE
     Indication: DIABETES MELLITUS
     Route: 048
     Dates: start: 19990801
  32. TRADJENTA [Concomitant]
     Active Substance: LINAGLIPTIN
     Indication: DIABETES MELLITUS
     Route: 048
     Dates: start: 2014
  33. ZETIA [Concomitant]
     Active Substance: EZETIMIBE
     Indication: BLOOD CHOLESTEROL INCREASED
     Route: 048
  34. ACCOLATE [Concomitant]
     Active Substance: ZAFIRLUKAST
     Dates: start: 19990208
  35. GLUCOPHAGE [Concomitant]
     Active Substance: METFORMIN HYDROCHLORIDE
     Dates: start: 19990201
  36. VIAGRA [Concomitant]
     Active Substance: SILDENAFIL CITRATE
     Dates: start: 19991108
  37. ZOCOR [Concomitant]
     Active Substance: SIMVASTATIN
     Dates: start: 19990108
  38. ACULAR [Concomitant]
     Active Substance: KETOROLAC TROMETHAMINE
     Dates: start: 19990224
  39. CYCLOCORT [Concomitant]
     Active Substance: AMCINONIDE
  40. SKELAXIN [Concomitant]
     Active Substance: METAXALONE
  41. BYETTA [Concomitant]
     Active Substance: EXENATIDE
  42. NAFTIN [Concomitant]
     Active Substance: NAFTIFINE HYDROCHLORIDE
  43. ELIQUIS [Concomitant]
     Active Substance: APIXABAN
     Route: 048
  44. BYDUREON [Suspect]
     Active Substance: EXENATIDE
     Indication: DIABETES MELLITUS
     Route: 058
     Dates: start: 201502
  45. PREVACID [Suspect]
     Active Substance: LANSOPRAZOLE
     Indication: GASTROOESOPHAGEAL REFLUX DISEASE
     Dosage: 30 MG
     Route: 065
     Dates: start: 20070305, end: 20091204
  46. FISH OIL [Concomitant]
     Active Substance: FISH OIL
     Indication: CARDIAC DISORDER
     Route: 048
     Dates: start: 2003
  47. METFORMIN HYDROCHLORIDE. [Concomitant]
     Active Substance: METFORMIN HYDROCHLORIDE
     Indication: DIABETES MELLITUS
     Route: 048
     Dates: start: 2006
  48. MELOXICAM. [Concomitant]
     Active Substance: MELOXICAM
     Indication: INFLAMMATION
     Route: 065
     Dates: start: 2007, end: 2010
  49. SEREVENT DISKUS [Concomitant]
     Active Substance: SALMETEROL XINAFOATE
     Dates: start: 19990801
  50. BETAXOLOL. [Concomitant]
     Active Substance: BETAXOLOL
  51. SPIRIVA [Concomitant]
     Active Substance: TIOTROPIUM BROMIDE MONOHYDRATE
  52. LEVITRA [Concomitant]
     Active Substance: VARDENAFIL HYDROCHLORIDE TRIHYDRATE
  53. CICLOPIROX. [Concomitant]
     Active Substance: CICLOPIROX
  54. WELCHOL [Concomitant]
     Active Substance: COLESEVELAM HYDROCHLORIDE
  55. MONTELUKAST [Concomitant]
     Active Substance: MONTELUKAST SODIUM
  56. NEXIUM [Suspect]
     Active Substance: ESOMEPRAZOLE MAGNESIUM
     Indication: GASTROOESOPHAGEAL REFLUX DISEASE
     Route: 048
     Dates: start: 19990102, end: 2015
  57. ALLOPURINOL. [Concomitant]
     Active Substance: ALLOPURINOL
     Route: 048
  58. RHINOCORT [Concomitant]
     Active Substance: BUDESONIDE
     Dates: start: 20031125
  59. FLONASE [Concomitant]
     Active Substance: FLUTICASONE PROPIONATE
     Dates: start: 19990801
  60. NIASPAN [Concomitant]
     Active Substance: NIACIN
     Dates: start: 20000706
  61. ZOTO [Concomitant]
     Dates: start: 19991105
  62. KLOR [Concomitant]
  63. COLCHICINE. [Concomitant]
     Active Substance: COLCHICINE
  64. PATANASE [Concomitant]
     Active Substance: OLOPATADINE HYDROCHLORIDE
  65. ONGLYZA [Concomitant]
     Active Substance: SAXAGLIPTIN HYDROCHLORIDE
  66. NIACIN. [Concomitant]
     Active Substance: NIACIN
  67. FENOFIBRATE. [Concomitant]
     Active Substance: FENOFIBRATE
  68. PROVENTIL HFA [Concomitant]
     Active Substance: ALBUTEROL SULFATE
     Dosage: 1.25MG 3 TIMES A DAY
  69. NEXIUM [Suspect]
     Active Substance: ESOMEPRAZOLE MAGNESIUM
     Indication: GASTROOESOPHAGEAL REFLUX DISEASE
     Dosage: 40 MG
     Route: 048
     Dates: start: 20121119
  70. ASPIRIN. [Concomitant]
     Active Substance: ASPIRIN
     Indication: CARDIAC DISORDER
     Route: 048
     Dates: start: 2003
  71. DALIRESP [Concomitant]
     Active Substance: ROFLUMILAST
     Indication: CHRONIC OBSTRUCTIVE PULMONARY DISEASE
     Route: 048
     Dates: start: 20150331
  72. NITROQUICK [Concomitant]
     Active Substance: NITROGLYCERIN
     Dosage: NITROSTAT-PRN -AS NEEDED
     Route: 060
  73. LORAZEPAM. [Concomitant]
     Active Substance: LORAZEPAM
  74. ULTRAM [Concomitant]
     Active Substance: TRAMADOL HYDROCHLORIDE
     Dates: start: 19990208
  75. PANTANOL [Concomitant]
     Dates: start: 19990801
  76. ACULAR [Concomitant]
     Active Substance: KETOROLAC TROMETHAMINE
     Dates: start: 19990224
  77. BETAMETH [Concomitant]
  78. AVELOX [Concomitant]
     Active Substance: MOXIFLOXACIN HYDROCHLORIDE
  79. NASACORT [Concomitant]
     Active Substance: TRIAMCINOLONE ACETONIDE
  80. CROMOLYN [Concomitant]
     Active Substance: CROMOLYN
  81. AUGMENTIN [Concomitant]
     Active Substance: AMOXICILLIN\CLAVULANATE POTASSIUM
  82. OXISTAT [Concomitant]
     Active Substance: OXICONAZOLE NITRATE
  83. TERBINAFINE. [Concomitant]
     Active Substance: TERBINAFINE
  84. TAMSULOSIN [Concomitant]
     Active Substance: TAMSULOSIN
  85. TRULICITY [Concomitant]
     Active Substance: DULAGLUTIDE
  86. ALBUTEROL. [Concomitant]
     Active Substance: ALBUTEROL
     Dosage: 90MCG AERO-PRN -AS NEEDED
  87. PRILOSEC [Suspect]
     Active Substance: OMEPRAZOLE MAGNESIUM
     Indication: GASTROOESOPHAGEAL REFLUX DISEASE
     Dosage: GENERIC 40 MG-QHS -1 EVERY BEDTIME
     Route: 048
  88. LIPITOR [Concomitant]
     Active Substance: ATORVASTATIN CALCIUM
     Indication: BLOOD CHOLESTEROL INCREASED
     Dosage: QHS - 1 EVERY BEDTIME
     Route: 048
     Dates: start: 2000
  89. DEMADEX [Concomitant]
     Active Substance: TORSEMIDE
  90. LODINE [Concomitant]
     Active Substance: ETODOLAC
     Dates: start: 19990801
  91. KERLONE [Concomitant]
     Active Substance: BETAXOLOL HYDROCHLORIDE
     Dates: start: 19990801
  92. ACCUPRIL [Concomitant]
     Active Substance: QUINAPRIL HYDROCHLORIDE
     Dates: start: 19990108
  93. REZULIN [Concomitant]
     Active Substance: TROGLITAZONE
     Dates: start: 19990108
  94. ALLAGRA [Concomitant]
     Dates: start: 19990503
  95. SULINDAC. [Concomitant]
     Active Substance: SULINDAC
     Dates: start: 19990208
  96. TORSEMIDE. [Concomitant]
     Active Substance: TORSEMIDE
  97. ZYRTEC [Concomitant]
     Active Substance: CETIRIZINE HYDROCHLORIDE
  98. PENLAC [Concomitant]
     Active Substance: CICLOPIROX
  99. INSULIN [Concomitant]
     Active Substance: INSULIN NOS
  100. AMOXICILLIN. [Concomitant]
     Active Substance: AMOXICILLIN
  101. ULORIC [Concomitant]
     Active Substance: FEBUXOSTAT
  102. VENTOLIN [Concomitant]
     Active Substance: ALBUTEROL SULFATE
  103. CARDIZEM CD [Concomitant]
     Active Substance: DILTIAZEM HYDROCHLORIDE
     Route: 048
  104. NEXIUM [Suspect]
     Active Substance: ESOMEPRAZOLE MAGNESIUM
     Indication: GASTROOESOPHAGEAL REFLUX DISEASE
     Dosage: 40 MG
     Route: 048
     Dates: start: 20060206, end: 20110129
  105. PRILOSEC [Suspect]
     Active Substance: OMEPRAZOLE MAGNESIUM
     Indication: GASTROOESOPHAGEAL REFLUX DISEASE
     Dosage: 20 MG
     Route: 048
     Dates: start: 19990208, end: 20000505
  106. PRILOSEC [Suspect]
     Active Substance: OMEPRAZOLE MAGNESIUM
     Indication: GASTROOESOPHAGEAL REFLUX DISEASE
     Dosage: GENERIC 40 MG
     Route: 048
     Dates: start: 20110715, end: 20151228
  107. FUROSEMIDE. [Concomitant]
     Active Substance: FUROSEMIDE
     Indication: FLUID RETENTION
     Route: 065
     Dates: start: 20001124
  108. SPIRIVA [Concomitant]
     Active Substance: TIOTROPIUM BROMIDE MONOHYDRATE
     Route: 065
  109. OXYCOD [Concomitant]
     Dates: start: 20031125
  110. PROAIR HFA [Concomitant]
     Active Substance: ALBUTEROL SULFATE
     Dates: start: 20150404
  111. DOXAZOSIN [Concomitant]
     Active Substance: DOXAZOSIN\DOXAZOSIN MESYLATE
  112. METHYLPRED [Concomitant]
     Active Substance: METHYLPREDNISOLONE
  113. DOXAZOSIN [Concomitant]
     Active Substance: DOXAZOSIN\DOXAZOSIN MESYLATE
  114. METOPROLOL SUCCINATE. [Concomitant]
     Active Substance: METOPROLOL SUCCINATE
     Route: 048
  115. SYMBICORT [Concomitant]
     Active Substance: BUDESONIDE\FORMOTEROL FUMARATE DIHYDRATE
     Dosage: 160-4.5MCG/ACT INHALATION AEROSOL TAKE AS DIRECTED TUD
  116. NASONEX [Concomitant]
     Active Substance: MOMETASONE FUROATE
     Dosage: 50 MCG/ACT SUSP, TWICE A DAY
  117. MEGA MULTIVITAMIN FOR MEN [Concomitant]
     Route: 048

REACTIONS (6)
  - Renal failure [Unknown]
  - Nephrogenic anaemia [Unknown]
  - Chronic kidney disease [Not Recovered/Not Resolved]
  - Decreased appetite [Not Recovered/Not Resolved]
  - Chronic kidney disease-mineral and bone disorder [Unknown]
  - Device issue [Unknown]

NARRATIVE: CASE EVENT DATE: 2008
